FAERS Safety Report 17184655 (Version 2)
Quarter: 2020Q1

REPORT INFORMATION
  Report Type: Spontaneous
  Country: US (occurrence: US)
  Receive Date: 20191220
  Receipt Date: 20200303
  Transmission Date: 20200409
  Serious: Yes (Other)
  Sender: FDA-Public Use
  Company Number: US-AMGEN-USASP2019209296

PATIENT
  Age: 82 Year
  Sex: Female

DRUGS (7)
  1. LISINOPRIL. [Concomitant]
     Active Substance: LISINOPRIL
     Indication: HYPERTENSION
     Dosage: UNK
  2. REPATHA [Suspect]
     Active Substance: EVOLOCUMAB
     Indication: BLOOD CHOLESTEROL INCREASED
     Dosage: UNK UNK, Q2WK
     Route: 065
     Dates: start: 20190930, end: 20191014
  3. ELIQUIS [Concomitant]
     Active Substance: APIXABAN
     Indication: ATRIAL FIBRILLATION
     Dosage: UNK
     Dates: start: 2019
  4. FISH OIL [Concomitant]
     Active Substance: FISH OIL
     Indication: MACULAR DEGENERATION
     Dosage: UNK
  5. FLAXSEED OIL [LINUM USITATISSIMUM OIL] [Concomitant]
     Indication: MACULAR DEGENERATION
     Dosage: UNK
  6. BYSTOLIC [Concomitant]
     Active Substance: NEBIVOLOL HYDROCHLORIDE
     Indication: HYPERTENSION
     Dosage: UNK
  7. BABY ASPIRIN [Concomitant]
     Active Substance: ASPIRIN
     Dosage: UNK

REACTIONS (10)
  - Arthralgia [Recovered/Resolved]
  - Myalgia [Unknown]
  - Burning sensation [Unknown]
  - Pain in extremity [Recovered/Resolved]
  - Transient ischaemic attack [Unknown]
  - Visual impairment [Unknown]
  - Chills [Unknown]
  - Confusional state [Unknown]
  - Bone pain [Recovered/Resolved]
  - Dizziness [Unknown]

NARRATIVE: CASE EVENT DATE: 2019
